FAERS Safety Report 14849421 (Version 2)
Quarter: 2018Q4

REPORT INFORMATION
  Report Type: Spontaneous
  Country: CA (occurrence: CA)
  Receive Date: 20180504
  Receipt Date: 20181227
  Transmission Date: 20190204
  Serious: Yes (Other)
  Sender: FDA-Public Use
  Company Number: CA-BIOVERATIV-2018BV000231

PATIENT
  Age: 16 Year
  Sex: Male
  Weight: 88.3 kg

DRUGS (2)
  1. ALPROLIX [Suspect]
     Active Substance: EFTRENONACOG ALFA
     Dosage: EVERY 2-3 DAYS
     Route: 042
  2. ALPROLIX [Suspect]
     Active Substance: EFTRENONACOG ALFA
     Indication: FACTOR IX DEFICIENCY
     Dosage: 4000 IU, QW
     Route: 042

REACTIONS (3)
  - Factor IX inhibition [Unknown]
  - Haemorrhage [Not Recovered/Not Resolved]
  - Drug half-life reduced [Unknown]

NARRATIVE: CASE EVENT DATE: 201712
